FAERS Safety Report 5487389-X (Version None)
Quarter: 2007Q4

REPORT INFORMATION
  Report Type: 
  Country: None (occurrence: None)
  Receive Date: 20071016
  Receipt Date: 20070928
  Transmission Date: 20080405
  Serious: No
  Sender: FDA-Public Use
  Company Number: US-BOEHRINGER INGELHEIM PHARMACEUTICALS, INC.-2007-BP-21924BP

PATIENT
  Sex: Female

DRUGS (3)
  1. MIRAPEX [Suspect]
     Indication: PARKINSON'S DISEASE
     Route: 048
     Dates: start: 20070907
  2. SINEMET [Concomitant]
     Indication: PARKINSON'S DISEASE
  3. CELEXA [Concomitant]

REACTIONS (2)
  - MUSCLE RIGIDITY [None]
  - MUSCLE SPASMS [None]
